FAERS Safety Report 4406004-7 (Version None)
Quarter: 2004Q3

REPORT INFORMATION
  Report Type: 
  Country: None (occurrence: None)
  Receive Date: 20040723
  Receipt Date: 20040312
  Transmission Date: 20050211
  Serious: No
  Sender: FDA-Public Use
  Company Number: US-GLAXOSMITHKLINE-A0502572A

PATIENT
  Age: 79 Year
  Sex: Female

DRUGS (2)
  1. AVANDIA [Suspect]
     Dosage: 4MG PER DAY
     Route: 048
     Dates: start: 20030701, end: 20040305
  2. GLYBURIDE [Concomitant]

REACTIONS (5)
  - BACK PAIN [None]
  - CONSTIPATION [None]
  - FAECES DISCOLOURED [None]
  - OEDEMA PERIPHERAL [None]
  - SCIATICA [None]
